FAERS Safety Report 8143147-9 (Version None)
Quarter: 2012Q1

REPORT INFORMATION
  Report Type: 
  Country: None (occurrence: None)
  Receive Date: 20120217
  Receipt Date: 20120213
  Transmission Date: 20120608
  Serious: No
  Sender: FDA-Public Use
  Company Number: US-PFIZER INC-2012029178

PATIENT
  Sex: Female

DRUGS (2)
  1. PREMARIN [Suspect]
     Indication: OESTROGEN DEFICIENCY
     Dosage: UNK
  2. NORVASC [Concomitant]
     Dosage: UNK
     Route: 048

REACTIONS (1)
  - HOT FLUSH [None]
